FAERS Safety Report 7699704-7 (Version None)
Quarter: 2011Q3

REPORT INFORMATION
  Report Type: 
  Country: None (occurrence: None)
  Receive Date: 20110822
  Receipt Date: 20110810
  Transmission Date: 20111222
  Serious: No
  Sender: FDA-Public Use
  Company Number: US-BIOGENIDEC-2011BI030474

PATIENT
  Age: 41 Year
  Sex: Female

DRUGS (2)
  1. ARICEPT [Concomitant]
     Indication: MEMORY IMPAIRMENT
     Dates: start: 20100101, end: 20100101
  2. TYSABRI [Suspect]
     Indication: MULTIPLE SCLEROSIS
     Route: 042
     Dates: start: 20090101, end: 20110519

REACTIONS (2)
  - MULTIPLE SCLEROSIS [None]
  - HYPOAESTHESIA [None]
